FAERS Safety Report 12222328 (Version 2)
Quarter: 2016Q2

REPORT INFORMATION
  Report Type: Report from Study
  Country: None (occurrence: US)
  Receive Date: 20160330
  Receipt Date: 20160408
  Transmission Date: 20160815
  Serious: Yes (Other)
  Sender: FDA-Public Use
  Company Number: US-TEVA-647708ACC

PATIENT

DRUGS (3)
  1. BENDAMUSTINE HYDROCHLORIDE. [Suspect]
     Active Substance: BENDAMUSTINE HYDROCHLORIDE
     Indication: NON-HODGKIN^S LYMPHOMA
     Dosage: ON DAYS 1 AND 2
     Route: 042
  2. RITUXIMAB [Concomitant]
     Active Substance: RITUXIMAB
     Indication: NON-HODGKIN^S LYMPHOMA
     Dosage: ON DAYS 1, 8, AND 15 OF CYCLE 1
     Route: 042
  3. BORTEZOMIB [Concomitant]
     Active Substance: BORTEZOMIB
     Indication: NON-HODGKIN^S LYMPHOMA
     Dosage: ON DAYS 1, 8, AND 15
     Route: 042

REACTIONS (2)
  - Atrial fibrillation [Unknown]
  - Prescribed underdose [Unknown]
